FAERS Safety Report 15737675 (Version 1)
Quarter: 2018Q4

REPORT INFORMATION
  Report Type: Report from Study
  Country: CL (occurrence: CL)
  Receive Date: 20181219
  Receipt Date: 20181219
  Transmission Date: 20190205
  Serious: Yes (Hospitalization)
  Sender: FDA-Public Use
  Company Number: CL-ROCHE-2231825

PATIENT
  Age: 69 Year
  Sex: Female

DRUGS (6)
  1. TRAMAL [Suspect]
     Active Substance: TRAMADOL
     Indication: PAIN MANAGEMENT
     Route: 048
     Dates: start: 20181127
  2. ELCAL-D [Concomitant]
     Active Substance: CALCIUM CARBONATE\CHOLECALCIFEROL
  3. VITAMIN C [Concomitant]
     Active Substance: ASCORBIC ACID
  4. ACTEMRA [Suspect]
     Active Substance: TOCILIZUMAB
     Indication: RHEUMATOID ARTHRITIS
     Route: 058
     Dates: start: 20160406, end: 201811
  5. ESCITALOPRAM [Concomitant]
     Active Substance: ESCITALOPRAM OXALATE
  6. METOJECT [Concomitant]
     Active Substance: METHOTREXATE SODIUM

REACTIONS (7)
  - Osteoarthritis [Unknown]
  - Knee operation [Recovered/Resolved]
  - Headache [Recovered/Resolved]
  - Procedural pain [Recovering/Resolving]
  - Nausea [Recovered/Resolved]
  - Bronchitis [Recovered/Resolved]
  - Mobility decreased [Recovering/Resolving]

NARRATIVE: CASE EVENT DATE: 20181112
